FAERS Safety Report 22922497 (Version 2)
Quarter: 2024Q3

REPORT INFORMATION
  Report Type: Spontaneous
  Country: US (occurrence: None)
  Receive Date: 20230908
  Receipt Date: 20240906
  Transmission Date: 20241016
  Serious: No
  Sender: DOMPE FARMACEUTICI
  Company Number: US-FARMAPROD-202302-0540

PATIENT
  Age: 67 Year
  Sex: Female
  Weight: 84.82 kg

DRUGS (18)
  1. OXERVATE [Suspect]
     Active Substance: CENEGERMIN-BKBJ
     Indication: Neurotrophic keratopathy
     Route: 047
     Dates: start: 20220926, end: 20221228
  2. OXERVATE [Suspect]
     Active Substance: CENEGERMIN-BKBJ
     Route: 047
     Dates: start: 20230221, end: 20230418
  3. OXERVATE [Suspect]
     Active Substance: CENEGERMIN-BKBJ
     Route: 047
     Dates: start: 20230427, end: 20230704
  4. OXERVATE [Suspect]
     Active Substance: CENEGERMIN-BKBJ
     Route: 047
     Dates: start: 20230704, end: 20230829
  5. OXERVATE [Suspect]
     Active Substance: CENEGERMIN-BKBJ
     Route: 047
     Dates: start: 20230830, end: 20231024
  6. OXERVATE [Suspect]
     Active Substance: CENEGERMIN-BKBJ
     Route: 047
     Dates: start: 20231025, end: 20231227
  7. OXERVATE [Suspect]
     Active Substance: CENEGERMIN-BKBJ
     Route: 047
     Dates: start: 20231228
  8. OXERVATE [Suspect]
     Active Substance: CENEGERMIN-BKBJ
  9. OXERVATE [Suspect]
     Active Substance: CENEGERMIN-BKBJ
  10. OXERVATE [Suspect]
     Active Substance: CENEGERMIN-BKBJ
  11. EZETIMIBE [Concomitant]
     Active Substance: EZETIMIBE
  12. CLONAZEPAM [Concomitant]
     Active Substance: CLONAZEPAM
  13. LEVOTHYROXINE SODIUM [Concomitant]
     Active Substance: LEVOTHYROXINE SODIUM
  14. VENLAFAXINE HCL [Concomitant]
     Active Substance: VENLAFAXINE HYDROCHLORIDE
     Dosage: FOR 24 HOURS
  15. VENLAFAXINE HCL [Concomitant]
     Active Substance: VENLAFAXINE HYDROCHLORIDE
  16. DUREZOL [Concomitant]
     Active Substance: DIFLUPREDNATE
  17. PANTOPRAZOLE SODIUM [Concomitant]
     Active Substance: PANTOPRAZOLE SODIUM
  18. EFFEXOR XR [Concomitant]
     Active Substance: VENLAFAXINE HYDROCHLORIDE
     Dosage: FOR 24 HOURS

REACTIONS (9)
  - Ocular vascular disorder [Recovered/Resolved]
  - Intentional product misuse [Unknown]
  - Product administration error [Unknown]
  - Product dose omission issue [Unknown]
  - Eye pain [Unknown]
  - Therapy interrupted [Unknown]
  - Intraocular pressure decreased [Recovering/Resolving]
  - Visual impairment [Not Recovered/Not Resolved]
  - Dizziness [Unknown]

NARRATIVE: CASE EVENT DATE: 20230701
